FAERS Safety Report 7791649-7 (Version None)
Quarter: 2011Q4

REPORT INFORMATION
  Report Type: 
  Country: None (occurrence: None)
  Receive Date: 20111003
  Receipt Date: 20110919
  Transmission Date: 20120403
  Serious: Yes (Other)
  Sender: FDA-Public Use
  Company Number: US-ELI_LILLY_AND_COMPANY-US201107002230

PATIENT
  Sex: Female
  Weight: 52.608 kg

DRUGS (3)
  1. FORTEO [Suspect]
     Dosage: 20 UG, QD
     Route: 065
     Dates: start: 20100605, end: 20100605
  2. FORTEO [Suspect]
     Indication: OSTEOPOROSIS
     Dosage: 20 UG, QD
     Route: 065
     Dates: start: 20100605, end: 20100605
  3. ANTIHYPERTENSIVES [Concomitant]

REACTIONS (9)
  - PUBIS FRACTURE [None]
  - FALL [None]
  - GAIT DISTURBANCE [None]
  - ARTHRALGIA [None]
  - FRACTURED SACRUM [None]
  - PAIN [None]
  - LOWER LIMB FRACTURE [None]
  - PAIN IN EXTREMITY [None]
  - DIZZINESS [None]
